FAERS Safety Report 16625281 (Version 1)
Quarter: 2019Q3

REPORT INFORMATION
  Report Type: Spontaneous
  Country: CA (occurrence: CA)
  Receive Date: 20190724
  Receipt Date: 20190724
  Transmission Date: 20191004
  Serious: Yes (Other)
  Sender: FDA-Public Use
  Company Number: CA-PFIZER INC-2019311938

PATIENT
  Age: 68 Year
  Sex: Female
  Weight: 102 kg

DRUGS (2)
  1. FRAGMIN [Suspect]
     Active Substance: DALTEPARIN SODIUM
     Indication: POSTOPERATIVE CARE
     Dosage: 5000 IU, 1X/DAY
     Route: 058
  2. FRAGMIN [Suspect]
     Active Substance: DALTEPARIN SODIUM
     Indication: KNEE ARTHROPLASTY

REACTIONS (7)
  - Somnolence [Recovered/Resolved]
  - Loss of consciousness [Recovered/Resolved]
  - Aphasia [Recovered/Resolved]
  - Abdominal discomfort [Recovered/Resolved]
  - Headache [Recovered/Resolved]
  - Palpitations [Recovered/Resolved]
  - Nausea [Recovered/Resolved]
